FAERS Safety Report 7139389-1 (Version None)
Quarter: 2010Q4

REPORT INFORMATION
  Report Type: 
  Country: None (occurrence: None)
  Receive Date: 20101206
  Receipt Date: 20101123
  Transmission Date: 20110411
  Serious: Yes (Hospitalization)
  Sender: FDA-Public Use
  Company Number: FR-WATSON-2010-15338

PATIENT
  Age: 56 Year
  Sex: Female

DRUGS (5)
  1. ISONIAZID [Suspect]
     Indication: DISSEMINATED TUBERCULOSIS
     Dosage: 250 MG, DAILY
     Dates: start: 20050101
  2. RIFAMPIN [Suspect]
     Indication: DISSEMINATED TUBERCULOSIS
     Dosage: 600 MG, DAILY
     Dates: start: 20050101
  3. PYRAZINAMIDE [Suspect]
     Indication: DISSEMINATED TUBERCULOSIS
     Dosage: 1500 MG, DAILY
     Dates: start: 20050101, end: 20050401
  4. ETHAMBUTOL HYDROCHLORIDE [Suspect]
     Indication: DISSEMINATED TUBERCULOSIS
     Dosage: 750 MG, DAILY
     Dates: start: 20050101, end: 20050401
  5. INFLIXIMAB [Suspect]
     Indication: ANKYLOSING SPONDYLITIS
     Dosage: 275 MG, SINGLE X 3 DOSES
     Route: 042
     Dates: start: 20041101, end: 20041201

REACTIONS (2)
  - IMMUNE RECONSTITUTION SYNDROME [None]
  - TUBERCULOSIS [None]
